FAERS Safety Report 4648914-1 (Version None)
Quarter: 2005Q2

REPORT INFORMATION
  Report Type: 
  Country: None (occurrence: None)
  Receive Date: 20050427
  Receipt Date: 20050418
  Transmission Date: 20051028
  Serious: Yes (Hospitalization)
  Sender: FDA-Public Use
  Company Number: US-2005-002139

PATIENT
  Age: 58 Year
  Sex: Female
  Weight: 95.2 kg

DRUGS (13)
  1. BETASERON [Suspect]
     Indication: MULTIPLE SCLEROSIS
     Dosage: 8 MIU, EVERY 2D, SUBCUTANEOUS
     Route: 058
     Dates: start: 20040903
  2. ZOLOFT [Concomitant]
  3. XANAX [Concomitant]
  4. ZYPREXA [Concomitant]
  5. ENALAPRIL MALEATE [Concomitant]
  6. DILANTIN  /AUS/(PHENYTOIN SODIUM) [Concomitant]
  7. DETROL [Concomitant]
  8. ZANAFLEX [Concomitant]
  9. BACLOFEN [Concomitant]
  10. PHENYTEK (PHENYTOIN) [Concomitant]
  11. CARBIDOPA (CARBIDOPA) [Concomitant]
  12. ATENOLOL [Concomitant]
  13. ARICEPT [Concomitant]

REACTIONS (1)
  - STAPHYLOCOCCAL BACTERAEMIA [None]
